FAERS Safety Report 15290820 (Version 1)
Quarter: 2018Q3

REPORT INFORMATION
  Report Type: Spontaneous
  Country: DK (occurrence: DK)
  Receive Date: 20180817
  Receipt Date: 20180817
  Transmission Date: 20181010
  Serious: Yes (Hospitalization)
  Sender: FDA-Public Use
  Company Number: DK-TEVA-2011B-02792

PATIENT
  Age: 20 Year
  Sex: Male
  Weight: 65 kg

DRUGS (2)
  1. LAMOTRIGIN ACTAVIS [Suspect]
     Active Substance: LAMOTRIGINE
     Indication: SEIZURE
     Dosage: 25 MILLIGRAM DAILY;
     Route: 048
     Dates: start: 20110822, end: 20110918
  2. DELEPSINE [Concomitant]
     Active Substance: VALPROATE SODIUM
     Indication: SEIZURE
     Route: 065
     Dates: start: 19941222

REACTIONS (4)
  - Blister [Recovering/Resolving]
  - Stevens-Johnson syndrome [Recovering/Resolving]
  - Epidermal necrosis [Recovering/Resolving]
  - Rash [Recovering/Resolving]

NARRATIVE: CASE EVENT DATE: 20110913
